FAERS Safety Report 7957034-X (Version None)
Quarter: 2011Q4

REPORT INFORMATION
  Report Type: 
  Country: None (occurrence: None)
  Receive Date: 20111205
  Receipt Date: 20111205
  Transmission Date: 20120403
  Serious: Yes (Life-Threatening)
  Sender: FDA-Public Use
  Company Number: None

PATIENT
  Age: 48 Year
  Sex: Female
  Weight: 97.068 kg

DRUGS (1)
  1. VENLAFAXINE HCL [Suspect]
     Indication: DEPRESSION
     Dosage: 1 TABLET
     Route: 048
     Dates: start: 20111201, end: 20111202

REACTIONS (5)
  - VISION BLURRED [None]
  - HYPERHIDROSIS [None]
  - THROAT TIGHTNESS [None]
  - NAUSEA [None]
  - DIZZINESS [None]
